FAERS Safety Report 9137743 (Version 6)
Quarter: 2016Q2

REPORT INFORMATION
  Report Type: Report from Study
  Country: JP (occurrence: JP)
  Receive Date: 20130304
  Receipt Date: 20160419
  Transmission Date: 20160815
  Serious: Yes (Hospitalization)
  Sender: FDA-Public Use
  Company Number: PHHO2009JP04210

PATIENT
  Age: 48 Year
  Sex: Female
  Weight: 51 kg

DRUGS (7)
  1. GILENYA [Suspect]
     Active Substance: FINGOLIMOD HYDROCHLORIDE
     Dosage: 1.25 MG, UNK
     Route: 048
     Dates: start: 20090305, end: 20090318
  2. GILENYA [Suspect]
     Active Substance: FINGOLIMOD HYDROCHLORIDE
     Indication: MULTIPLE SCLEROSIS
     Dosage: DOSE BLINDED
     Route: 048
     Dates: start: 20080904, end: 20090318
  3. GILENYA [Suspect]
     Active Substance: FINGOLIMOD HYDROCHLORIDE
     Dosage: UNK MG, UNK
     Route: 048
     Dates: start: 20080904, end: 20090304
  4. MAGNESIUM OXIDE. [Concomitant]
     Active Substance: MAGNESIUM OXIDE
     Indication: CONSTIPATION
     Route: 065
  5. ALOSENN [Concomitant]
     Active Substance: SENNA LEAF
     Indication: CONSTIPATION
     Route: 065
  6. LANSOPRAZOLE. [Concomitant]
     Active Substance: LANSOPRAZOLE
     Indication: ABDOMINAL PAIN UPPER
     Route: 065
  7. GILENYA [Suspect]
     Active Substance: FINGOLIMOD HYDROCHLORIDE
     Dosage: UNK
     Route: 065

REACTIONS (17)
  - Altered state of consciousness [Recovering/Resolving]
  - Movement disorder [Recovering/Resolving]
  - Speech disorder [Recovering/Resolving]
  - Encephalopathy [Recovered/Resolved with Sequelae]
  - Agnosia [Recovering/Resolving]
  - Aphasia [Recovering/Resolving]
  - Central nervous system lesion [Recovering/Resolving]
  - Cerebral disorder [Recovering/Resolving]
  - Neurologic neglect syndrome [Recovering/Resolving]
  - Amnesia [Recovering/Resolving]
  - Brain compression [Recovering/Resolving]
  - Headache [Recovering/Resolving]
  - Brain oedema [Recovering/Resolving]
  - Delirium [Recovering/Resolving]
  - Apraxia [Recovering/Resolving]
  - Hemiparesis [Recovering/Resolving]
  - Electroencephalogram abnormal [Recovering/Resolving]

NARRATIVE: CASE EVENT DATE: 20090314
